FAERS Safety Report 18216181 (Version 1)
Quarter: 2020Q3

REPORT INFORMATION
  Report Type: Spontaneous
  Country: US (occurrence: US)
  Receive Date: 20200901
  Receipt Date: 20200901
  Transmission Date: 20201103
  Serious: Yes (Other)
  Sender: FDA-Public Use
  Company Number: US-GLAND PHARMA LIMITED-2089270

PATIENT
  Age: 60 Year
  Sex: Female
  Weight: 50.4 kg

DRUGS (11)
  1. MIDAZOLAM. [Suspect]
     Active Substance: MIDAZOLAM
     Indication: ANAESTHESIA
     Route: 042
  2. PROPOFOL. [Concomitant]
     Active Substance: PROPOFOL
  3. OMEPRAZOLE. [Concomitant]
     Active Substance: OMEPRAZOLE
  4. BUPIVACAINE. [Concomitant]
     Active Substance: BUPIVACAINE
     Route: 042
  5. ALBUTEROL HFA [Concomitant]
     Active Substance: ALBUTEROL SULFATE
  6. BUPROPION. [Suspect]
     Active Substance: BUPROPION
  7. EPINEPHRINE. [Concomitant]
     Active Substance: EPINEPHRINE
  8. DILTIAZEM. [Concomitant]
     Active Substance: DILTIAZEM
  9. FENTANYL 100 UG [Concomitant]
  10. VALSARTAN. [Concomitant]
     Active Substance: VALSARTAN
  11. PAROXETINE. [Suspect]
     Active Substance: PAROXETINE

REACTIONS (1)
  - Extrapyramidal disorder [Recovered/Resolved]
